FAERS Safety Report 7349200-1 (Version None)
Quarter: 2011Q1

REPORT INFORMATION
  Report Type: 
  Country: None (occurrence: None)
  Receive Date: 20110303
  Receipt Date: 20110222
  Transmission Date: 20110831
  Serious: Yes (Hospitalization)
  Sender: FDA-Public Use
  Company Number: TPA2011A00381

PATIENT
  Age: 78 Year
  Sex: Male

DRUGS (15)
  1. LASIX [Concomitant]
  2. FLOMAX [Concomitant]
  3. FINASTERIDE [Concomitant]
  4. FLOVENT [Concomitant]
  5. WARFARIN (WARFARIN) [Concomitant]
  6. SINGULAIR [Concomitant]
  7. NEURONTIN [Concomitant]
  8. SIMVASTATIN [Concomitant]
  9. DIGOXIN [Concomitant]
  10. SIMETHICONE (SIMETICONE) [Concomitant]
  11. DEXILANT [Suspect]
     Dosage: 60 MG, 1 IN 1 D, PER ORAL
     Route: 048
     Dates: start: 20100401
  12. LISINORPIL (LISINOPRIL) [Concomitant]
  13. METOPROLOL (METOPROLOL) [Concomitant]
  14. DOCUSATE SODIUM (DOCUSATE SODIUM) [Concomitant]
  15. DARVOCET N 100 (PARACETAMOL, DEXTROPROPDXYPHENE NAPSILATE) [Concomitant]

REACTIONS (1)
  - DEVICE RELATED INFECTION [None]
